FAERS Safety Report 16041686 (Version 1)
Quarter: 2019Q1

REPORT INFORMATION
  Report Type: Spontaneous
  Country: US (occurrence: US)
  Receive Date: 20190306
  Receipt Date: 20190306
  Transmission Date: 20190418
  Serious: No
  Sender: FDA-Public Use
  Company Number: US-AKORN PHARMACEUTICALS-2018AKN01266

PATIENT
  Sex: Female
  Weight: 107.03 kg

DRUGS (3)
  1. UNSPECIFIED MULTIVITAMINS [Concomitant]
  2. MYORISAN [Suspect]
     Active Substance: ISOTRETINOIN
     Indication: ACNE
     Dosage: 40 MG, 2X/DAY
     Route: 048
     Dates: start: 201806
  3. UNSPECIFIED PROBIOTICS [Concomitant]

REACTIONS (7)
  - Pain [Not Recovered/Not Resolved]
  - Gait disturbance [Not Recovered/Not Resolved]
  - Arthralgia [Not Recovered/Not Resolved]
  - Tendon pain [Not Recovered/Not Resolved]
  - Fatigue [Not Recovered/Not Resolved]
  - Groin pain [Not Recovered/Not Resolved]
  - Spinal pain [Not Recovered/Not Resolved]

NARRATIVE: CASE EVENT DATE: 2018
